FAERS Safety Report 19229331 (Version 1)
Quarter: 2021Q2

REPORT INFORMATION
  Report Type: Spontaneous
  Country: US (occurrence: US)
  Receive Date: 20210507
  Receipt Date: 20210507
  Transmission Date: 20210717
  Serious: No
  Sender: FDA-Public Use
  Company Number: US-BAUSCH-BL-2021-016074

PATIENT
  Age: 49 Year
  Sex: Female

DRUGS (1)
  1. XIFAXAN [Suspect]
     Active Substance: RIFAXIMIN
     Indication: AMMONIA INCREASED
     Dosage: FOR ABOUT 2 YEARS
     Route: 048
     Dates: start: 2019, end: 2021

REACTIONS (2)
  - Therapy interrupted [Unknown]
  - Confusional state [Unknown]

NARRATIVE: CASE EVENT DATE: 2021
